FAERS Safety Report 13718549 (Version 1)
Quarter: 2017Q3

REPORT INFORMATION
  Report Type: Spontaneous
  Country: DK (occurrence: DK)
  Receive Date: 20170705
  Receipt Date: 20170705
  Transmission Date: 20171127
  Serious: Yes (Death, Other)
  Sender: FDA-Public Use
  Company Number: DK-PFIZER INC-2017286454

PATIENT
  Age: 35 Year
  Sex: Female

DRUGS (1)
  1. INLYTA [Suspect]
     Active Substance: AXITINIB
     Indication: RENAL CELL CARCINOMA
     Dosage: 5 MG, 2X/DAY

REACTIONS (4)
  - Hepatotoxicity [Unknown]
  - Stomatitis [Unknown]
  - Neoplasm progression [Unknown]
  - Death [Fatal]
